FAERS Safety Report 21249616 (Version 3)
Quarter: 2022Q4

REPORT INFORMATION
  Report Type: Report from Study
  Country: PR (occurrence: PR)
  Receive Date: 20220824
  Receipt Date: 20221007
  Transmission Date: 20230113
  Serious: Yes (Other)
  Sender: FDA-Public Use
  Company Number: PR-ABBVIE-22K-131-4507007-00

PATIENT
  Age: 75 Year
  Sex: Female
  Weight: 46.3 kg

DRUGS (15)
  1. HUMIRA [Suspect]
     Active Substance: ADALIMUMAB
     Indication: Rheumatoid arthritis
     Route: 058
     Dates: start: 2017, end: 202208
  2. HUMIRA [Suspect]
     Active Substance: ADALIMUMAB
     Route: 058
     Dates: start: 20050614
  3. FAMOTIDINE [Concomitant]
     Active Substance: FAMOTIDINE
     Indication: Gastritis
     Route: 048
  4. PFIZER-BIONTECH COVID-19 VACCINE [Concomitant]
     Active Substance: TOZINAMERAN
     Indication: COVID-19
     Dosage: 3RD DOSE, ONE IN ONCE
     Route: 030
     Dates: start: 20211012, end: 20211012
  5. PFIZER-BIONTECH COVID-19 VACCINE [Concomitant]
     Active Substance: TOZINAMERAN
     Indication: COVID-19
     Dosage: 1ST DOSE, ONE IN ONCE
     Route: 030
     Dates: start: 20210216, end: 20210216
  6. PFIZER-BIONTECH COVID-19 VACCINE [Concomitant]
     Active Substance: TOZINAMERAN
     Indication: COVID-19
     Dosage: 2ND DOSE, ONE IN ONCE
     Route: 030
     Dates: start: 20210309, end: 20210309
  7. PFIZER-BIONTECH COVID-19 VACCINE [Concomitant]
     Active Substance: TOZINAMERAN
     Indication: COVID-19
     Dosage: 4TH DOSE, ONE IN ONCE
     Route: 030
  8. LOSARTAN [Concomitant]
     Active Substance: LOSARTAN
     Indication: Hypertension
     Route: 048
  9. LABETALOL [Concomitant]
     Active Substance: LABETALOL\LABETALOL HYDROCHLORIDE
     Indication: Hypertension
     Route: 048
  10. FOLIC ACID [Concomitant]
     Active Substance: FOLIC ACID
     Indication: Product used for unknown indication
     Route: 048
  11. METHOTREXATE [Concomitant]
     Active Substance: METHOTREXATE
     Indication: Rheumatoid arthritis
     Route: 048
  12. METHYLPREDNISOLONE [Concomitant]
     Active Substance: METHYLPREDNISOLONE
     Indication: Antiinflammatory therapy
     Route: 048
  13. CATAFLAM [Concomitant]
     Active Substance: DICLOFENAC POTASSIUM
     Indication: Pain
     Route: 048
  14. CATAFLAM [Concomitant]
     Active Substance: DICLOFENAC POTASSIUM
     Indication: Pain
     Route: 048
  15. HUMIRA [Suspect]
     Active Substance: ADALIMUMAB

REACTIONS (4)
  - Pelvic fracture [Recovering/Resolving]
  - Hypotension [Not Recovered/Not Resolved]
  - Haemoglobin decreased [Not Recovered/Not Resolved]
  - Fall [Recovering/Resolving]

NARRATIVE: CASE EVENT DATE: 20220815
